FAERS Safety Report 20620881 (Version 1)
Quarter: 2022Q1

REPORT INFORMATION
  Report Type: Spontaneous
  Country: PT (occurrence: PT)
  Receive Date: 20220322
  Receipt Date: 20220322
  Transmission Date: 20220423
  Serious: Yes (Other)
  Sender: FDA-Public Use
  Company Number: PT-MYLANLABS-2022M1020951

PATIENT
  Age: 54 Year
  Sex: Female

DRUGS (1)
  1. METFORMIN [Suspect]
     Active Substance: METFORMIN HYDROCHLORIDE
     Indication: Product used for unknown indication
     Dosage: 1000 MILLIGRAM, BID

REACTIONS (5)
  - Acute kidney injury [Unknown]
  - Lactic acidosis [Unknown]
  - Oliguria [Unknown]
  - Fatigue [Unknown]
  - Metabolic acidosis [Unknown]
